FAERS Safety Report 7432195-X (Version None)
Quarter: 2011Q2

REPORT INFORMATION
  Report Type: 
  Country: None (occurrence: None)
  Receive Date: 20110422
  Receipt Date: 20110421
  Transmission Date: 20111010
  Serious: Yes (Hospitalization, Other)
  Sender: FDA-Public Use
  Company Number: IT-SANOFI-AVENTIS-2011SA023386

PATIENT
  Age: 45 Year
  Sex: Female

DRUGS (5)
  1. ORAP [Suspect]
     Route: 065
     Dates: start: 20110330, end: 20110330
  2. GABAPENTIN [Suspect]
     Route: 065
     Dates: start: 20110330, end: 20110330
  3. STILNOX [Suspect]
     Route: 065
     Dates: start: 20110330, end: 20110330
  4. ASPIRIN [Suspect]
     Route: 065
     Dates: start: 20110330, end: 20110330
  5. TEGRETOL [Suspect]
     Route: 065
     Dates: start: 20110330, end: 20110330

REACTIONS (4)
  - INTENTIONAL DRUG MISUSE [None]
  - OBSTRUCTIVE AIRWAYS DISORDER [None]
  - HYPOXIA [None]
  - COMA [None]
